FAERS Safety Report 21658917 (Version 1)
Quarter: 2022Q4

REPORT INFORMATION
  Report Type: Spontaneous
  Country: US (occurrence: US)
  Receive Date: 20221129
  Receipt Date: 20221129
  Transmission Date: 20230112
  Serious: Yes (Other)
  Sender: FDA-Public Use
  Company Number: US-ORGANON-O2211USA002207

PATIENT
  Sex: Female
  Weight: 70.295 kg

DRUGS (2)
  1. NEXPLANON [Suspect]
     Active Substance: ETONOGESTREL
     Indication: Contraception
     Dosage: 1 IMPLANT IN LEFT ARM FOR 3 YEARS
     Route: 059
     Dates: start: 20220919, end: 20221108
  2. NEXPLANON [Suspect]
     Active Substance: ETONOGESTREL
     Indication: Hormone level abnormal

REACTIONS (4)
  - Blindness [Not Recovered/Not Resolved]
  - Seizure [Unknown]
  - Dysphemia [Not Recovered/Not Resolved]
  - Migraine [Recovering/Resolving]

NARRATIVE: CASE EVENT DATE: 20220101
